FAERS Safety Report 4766083-4 (Version None)
Quarter: 2005Q3

REPORT INFORMATION
  Report Type: 
  Country: None (occurrence: None)
  Receive Date: 20050906
  Receipt Date: 20050818
  Transmission Date: 20060218
  Serious: Yes (Disabling, Other)
  Sender: FDA-Public Use
  Company Number: A-US2005-10450

PATIENT
  Age: 83 Year
  Sex: Male
  Weight: 102.9 kg

DRUGS (10)
  1. TRACLEER [Suspect]
     Indication: PULMONARY HYPERTENSION
     Dosage: 62.5 MG, BID, ORAL
     Route: 048
     Dates: end: 20050111
  2. GLUCOTROL XL [Concomitant]
  3. SEREVENT [Concomitant]
  4. LASIX [Concomitant]
  5. SPIRVA [Concomitant]
  6. OXYGEN (OXYGEN) [Concomitant]
  7. MONOPRIL [Concomitant]
  8. NTG (GLYCERYL TRINITRATE) [Concomitant]
  9. FLOMAX (MORNIFLUMATE) [Concomitant]
  10. ZAROXOLYN [Concomitant]

REACTIONS (4)
  - DEAFNESS [None]
  - FEELING ABNORMAL [None]
  - HALLUCINATION [None]
  - VISUAL DISTURBANCE [None]
